FAERS Safety Report 23548239 (Version 2)
Quarter: 2024Q4

REPORT INFORMATION
  Report Type: Report from Study
  Country: US (occurrence: US)
  Receive Date: 20240221
  Receipt Date: 20241022
  Transmission Date: 20250115
  Serious: No
  Sender: ROCHE
  Company Number: US-ROCHE-3344691

PATIENT
  Age: 23 Year
  Sex: Female

DRUGS (1)
  1. PULMOZYME [Suspect]
     Active Substance: DORNASE ALFA
     Indication: Cystic fibrosis
     Dosage: AMPUL, NEBULIZE THE CONTENTS OF 1 VIAL(S) TWICE A DAY?MOST RECENT DOSE ON /AUG/2023
     Route: 065
     Dates: start: 202307

REACTIONS (2)
  - Maternal exposure during pregnancy [Unknown]
  - No adverse event [Unknown]
